FAERS Safety Report 24884844 (Version 8)
Quarter: 2025Q3

REPORT INFORMATION
  Report Type: Spontaneous
  Country: US (occurrence: US)
  Receive Date: 20250124
  Receipt Date: 20250731
  Transmission Date: 20251020
  Serious: Yes (Hospitalization, Other)
  Sender: SANOFI AVENTIS
  Company Number: US-SA-2025SA021782

PATIENT
  Age: 58 Year
  Sex: Female

DRUGS (16)
  1. REZUROCK [Suspect]
     Active Substance: BELUMOSUDIL
     Indication: Bone marrow transplant
     Dosage: 200 MG, QD
     Route: 048
     Dates: start: 202412
  2. ALDACTONE [Concomitant]
     Active Substance: SPIRONOLACTONE
     Route: 048
  3. ASPIRIN [Concomitant]
     Active Substance: ASPIRIN
     Route: 048
  4. BUMEX [Concomitant]
     Active Substance: BUMETANIDE
     Route: 048
  5. BUMEX [Concomitant]
     Active Substance: BUMETANIDE
  6. CARAFATE [Concomitant]
     Active Substance: SUCRALFATE
     Route: 048
  7. CARAFATE [Concomitant]
     Active Substance: SUCRALFATE
  8. JARDIANCE [Concomitant]
     Active Substance: EMPAGLIFLOZIN
     Route: 048
  9. METOPROLOL TARTRATE [Concomitant]
     Active Substance: METOPROLOL TARTRATE
     Route: 048
  10. PEPCID [Concomitant]
     Active Substance: FAMOTIDINE
     Route: 048
  11. ROXICODONE [Concomitant]
     Active Substance: OXYCODONE HYDROCHLORIDE
     Route: 048
  12. TRELEGY ELLIPTA [Concomitant]
     Active Substance: FLUTICASONE FUROATE\UMECLIDINIUM BROMIDE\VILANTEROL TRIFENATATE
     Route: 055
  13. XIIDRA [Concomitant]
     Active Substance: LIFITEGRAST
     Route: 047
  14. RIFAXIMIN [Concomitant]
     Active Substance: RIFAXIMIN
  15. K tab [Concomitant]
     Route: 048
  16. KETOROLAC [Concomitant]
     Active Substance: KETOROLAC TROMETHAMINE

REACTIONS (14)
  - Cardiac failure chronic [Recovering/Resolving]
  - Pneumonia [Recovering/Resolving]
  - Fluid retention [Recovering/Resolving]
  - Gait inability [Recovering/Resolving]
  - Asthenia [Recovering/Resolving]
  - Eye infection [Recovering/Resolving]
  - Candida infection [Recovering/Resolving]
  - Blister [Recovering/Resolving]
  - Chapped lips [Recovering/Resolving]
  - Weight decreased [Unknown]
  - Back injury [Recovering/Resolving]
  - Oral candidiasis [Recovering/Resolving]
  - Product use in unapproved indication [Unknown]
  - Respiratory tract infection [Recovering/Resolving]

NARRATIVE: CASE EVENT DATE: 20241201
